FAERS Safety Report 10951005 (Version 1)
Quarter: 2015Q1

REPORT INFORMATION
  Report Type: Spontaneous
  Country: US (occurrence: None)
  Receive Date: 20150226
  Receipt Date: 20150226
  Transmission Date: 20150721
  Serious: No
  Sender: FDA-Public Use
  Company Number: TAP2005Q00029

PATIENT
  Age: 35 Year
  Sex: Male
  Weight: 97.52 kg

DRUGS (3)
  1. NASONEX [Concomitant]
     Active Substance: MOMETASONE FUROATE
  2. PREVACID [Suspect]
     Active Substance: LANSOPRAZOLE
     Indication: GASTROOESOPHAGEAL REFLUX DISEASE
     Route: 048
     Dates: start: 1998, end: 2003
  3. UNSPECIFIED ANTIHISTAMINE (ANTIHISTAMINES) [Concomitant]
     Indication: RHINITIS ALLERGIC

REACTIONS (5)
  - Urticaria [None]
  - Anaphylactic reaction [None]
  - Dyspnoea [None]
  - Syncope [None]
  - Food allergy [None]

NARRATIVE: CASE EVENT DATE: 1998
